FAERS Safety Report 4734519-0 (Version None)
Quarter: 2005Q3

REPORT INFORMATION
  Report Type: 
  Country: None (occurrence: None)
  Receive Date: 20050721
  Receipt Date: 20050419
  Transmission Date: 20060218
  Serious: No
  Sender: FDA-Public Use
  Company Number: 2005SP000252

PATIENT
  Age: 77 Year
  Sex: 0
  Weight: 83.9154 kg

DRUGS (1)
  1. LUNESTA [Suspect]
     Indication: INSOMNIA
     Dosage: 1 MG; HS
     Dates: start: 20050416, end: 20050418

REACTIONS (1)
  - PARADOXICAL DRUG REACTION [None]
